FAERS Safety Report 18103971 (Version 2)
Quarter: 2020Q3

REPORT INFORMATION
  Report Type: Spontaneous
  Country: US (occurrence: US)
  Receive Date: 20200803
  Receipt Date: 20200805
  Transmission Date: 20201103
  Serious: No
  Sender: FDA-Public Use
  Company Number: US-TEVA-2020-US-1808519

PATIENT
  Age: 68 Year
  Sex: Female

DRUGS (3)
  1. BUPRENORPHINE. [Suspect]
     Active Substance: BUPRENORPHINE
     Dosage: FORM STRENGTH: 10 MCG/HR
     Route: 062
  2. BUPRENORPHINE. [Suspect]
     Active Substance: BUPRENORPHINE
     Dosage: FORM STRENGTH: 5 MCG/HOUR
     Route: 062
     Dates: end: 20200726
  3. BUPRENORPHINE. [Suspect]
     Active Substance: BUPRENORPHINE
     Indication: NEURALGIA
     Dosage: FORM STRENGTH: 10 MCG/HR
     Route: 065
     Dates: start: 2019

REACTIONS (21)
  - Application site burn [Not Recovered/Not Resolved]
  - Skin exfoliation [Not Recovered/Not Resolved]
  - Abdominal pain upper [Unknown]
  - Euphoric mood [Unknown]
  - Application site pruritus [Unknown]
  - Asthenia [Unknown]
  - Feeling abnormal [Unknown]
  - Application site scar [Unknown]
  - Diarrhoea [Unknown]
  - Nausea [Unknown]
  - Application site swelling [Unknown]
  - Overdose [Not Recovered/Not Resolved]
  - Application site pain [Unknown]
  - Dyspnoea [Unknown]
  - Inability to afford medication [Unknown]
  - Application site erythema [Unknown]
  - Application site rash [Unknown]
  - Skin burning sensation [Unknown]
  - Skin irritation [Unknown]
  - Drug ineffective [Unknown]
  - Anger [Unknown]

NARRATIVE: CASE EVENT DATE: 2020
